FAERS Safety Report 16129695 (Version 1)
Quarter: 2019Q1

REPORT INFORMATION
  Report Type: Spontaneous
  Country: US (occurrence: US)
  Receive Date: 20190328
  Receipt Date: 20190328
  Transmission Date: 20190418
  Serious: Yes (Death)
  Sender: FDA-Public Use
  Company Number: US-PFIZER INC-2019135199

PATIENT
  Age: 74 Year
  Sex: Female
  Weight: 86.17 kg

DRUGS (5)
  1. OXYCODONE/APAP [OXYCODONE HYDROCHLORIDE;PARACETAMOL] [Concomitant]
     Indication: SPINAL OPERATION
  2. LYRICA [Suspect]
     Active Substance: PREGABALIN
     Indication: PAIN
     Dosage: 75 MG, 1X/DAY (ONCE AT BED TIME EVERY NIGHT)
     Route: 048
     Dates: start: 20181114
  3. OXYCODONE/APAP [OXYCODONE HYDROCHLORIDE;PARACETAMOL] [Concomitant]
     Indication: PELVIC FRACTURE
  4. OXYCODONE/APAP [OXYCODONE HYDROCHLORIDE;PARACETAMOL] [Concomitant]
     Indication: UPPER LIMB FRACTURE
  5. OXYCODONE/APAP [OXYCODONE HYDROCHLORIDE;PARACETAMOL] [Concomitant]
     Indication: COMPRESSION FRACTURE
     Dosage: [OXYCODONE: 5 MG]/[PARACETAMOL-325 MG] 2 TO 3 TIMES
     Route: 048

REACTIONS (3)
  - Fall [Fatal]
  - Concussion [Fatal]
  - Haemorrhagic cerebral infarction [Fatal]

NARRATIVE: CASE EVENT DATE: 20190209
